FAERS Safety Report 9282726 (Version 4)
Quarter: 2013Q3

REPORT INFORMATION
  Report Type: Report from Study
  Country: DE (occurrence: DE)
  Receive Date: 20130510
  Receipt Date: 20130725
  Transmission Date: 20140515
  Serious: Yes (Other)
  Sender: FDA-Public Use
  Company Number: PHHY2013DE045848

PATIENT
  Age: 32 Year
  Sex: Female
  Weight: 75 kg

DRUGS (3)
  1. FTY 720 [Suspect]
     Indication: MULTIPLE SCLEROSIS
     Dosage: 0.5 MG, QD
     Route: 048
     Dates: start: 20110517, end: 20130425
  2. IBUPROFEN [Concomitant]
     Indication: HEADACHE
     Dosage: 600 MG, PRN
     Route: 048
     Dates: start: 2004
  3. IBUPROFEN [Concomitant]
     Indication: INFLUENZA

REACTIONS (2)
  - Non-Hodgkin^s lymphoma [Recovered/Resolved]
  - Gamma-glutamyltransferase increased [Unknown]
